FAERS Safety Report 8124583-3 (Version None)
Quarter: 2012Q1

REPORT INFORMATION
  Report Type: 
  Country: None (occurrence: None)
  Receive Date: 20120209
  Receipt Date: 20120201
  Transmission Date: 20120608
  Serious: Yes (Hospitalization, Other)
  Sender: FDA-Public Use
  Company Number: CA-JNJFOC-20120201849

PATIENT
  Sex: Male
  Weight: 85.5 kg

DRUGS (2)
  1. REMICADE [Suspect]
     Indication: COLITIS ULCERATIVE
     Route: 042
     Dates: start: 20111102
  2. APO-PANTOPRAZOLE [Concomitant]
     Route: 048
     Dates: start: 20120131

REACTIONS (1)
  - HAEMOPTYSIS [None]
